FAERS Safety Report 6983506-0 (Version None)
Quarter: 2010Q3

REPORT INFORMATION
  Report Type: 
  Country: None (occurrence: None)
  Receive Date: 20100914
  Receipt Date: 20080910
  Transmission Date: 20110219
  Serious: No
  Sender: FDA-Public Use
  Company Number: US-WYE-H05391608

PATIENT
  Age: 81 Year
  Sex: Female
  Weight: 70.37 kg

DRUGS (7)
  1. ADVIL LIQUI-GELS [Suspect]
     Indication: BACK PAIN
     Dosage: 4 LIQUI-GELS AS NEEDED
     Route: 048
     Dates: start: 20070101
  2. WELLBUTRIN [Concomitant]
  3. SYNTHROID [Concomitant]
  4. MECLIZINE [Concomitant]
  5. TRIAMTERENE [Concomitant]
  6. ARICEPT [Concomitant]
  7. LISINOPRIL [Concomitant]

REACTIONS (2)
  - DRUG EFFECT DECREASED [None]
  - INCORRECT DOSE ADMINISTERED [None]
